FAERS Safety Report 9491746 (Version 1)
Quarter: 2013Q3

REPORT INFORMATION
  Report Type: Spontaneous
  Country: GB (occurrence: GB)
  Receive Date: 20130830
  Receipt Date: 20130830
  Transmission Date: 20140515
  Serious: Yes (Hospitalization, Other)
  Sender: FDA-Public Use
  Company Number: GB-PFIZER INC-2013246388

PATIENT
  Age: 93 Year
  Sex: Male
  Weight: 73 kg

DRUGS (6)
  1. DOXAZOSIN MESILATE [Suspect]
     Indication: HYPERTENSION
     Dosage: 4 MG, UNK
     Route: 048
     Dates: start: 20121030, end: 20121030
  2. ACETYLSALICYLIC ACID [Concomitant]
     Dosage: 75 MG, 1X/DAY
  3. LISINOPRIL [Concomitant]
     Dosage: 10 MG, 1X/DAY
  4. PRAVASTATIN [Concomitant]
     Dosage: 10 MG, 1X/DAY
  5. AMLODIPINE [Concomitant]
     Dosage: 5 MG, 1X/DAY
  6. BENDROFLUAZIDE [Concomitant]
     Dosage: 2.5 MG, 1X/DAY

REACTIONS (4)
  - Syncope [Recovered/Resolved]
  - Atrioventricular block first degree [Recovered/Resolved]
  - Bradycardia [Recovered/Resolved]
  - Atrioventricular block complete [Recovered/Resolved]
